FAERS Safety Report 8876294 (Version 2)
Quarter: 2013Q3

REPORT INFORMATION
  Report Type: Spontaneous
  Country: GB (occurrence: GB)
  Receive Date: 20121023
  Receipt Date: 20130927
  Transmission Date: 20140515
  Serious: Yes (Hospitalization, Other)
  Sender: FDA-Public Use
  Company Number: PHHY2012GB092939

PATIENT
  Age: 89 Year
  Sex: Female

DRUGS (5)
  1. DONEPEZIL [Suspect]
     Indication: DEMENTIA
     Dosage: 10 MG
     Route: 048
     Dates: start: 201201, end: 20120820
  2. ATENOLOL [Concomitant]
     Dosage: 25 MG
     Route: 048
  3. ASPIRIN [Concomitant]
     Dosage: 75 MG
     Route: 048
  4. FUROSEMIDE [Concomitant]
     Dosage: 20 MG
     Route: 048
  5. SIMVASTATIN [Concomitant]
     Dosage: 10 MG
     Route: 048

REACTIONS (3)
  - Circulatory collapse [Recovered/Resolved]
  - Atrioventricular block first degree [Recovered/Resolved]
  - Sinus bradycardia [Recovered/Resolved]
